FAERS Safety Report 20496604 (Version 3)
Quarter: 2022Q2

REPORT INFORMATION
  Report Type: Report from Study
  Country: KR (occurrence: KR)
  Receive Date: 20220221
  Receipt Date: 20220405
  Transmission Date: 20220720
  Serious: Yes (Hospitalization)
  Sender: FDA-Public Use
  Company Number: KR-AMGEN-KORNI2022027021

PATIENT
  Age: 71 Year
  Sex: Male
  Weight: 52.6 kg

DRUGS (13)
  1. CARFILZOMIB [Suspect]
     Active Substance: CARFILZOMIB
     Indication: Plasma cell myeloma
     Dosage: UNK MILLIGRAM
     Route: 042
     Dates: start: 20211220
  2. CARFILZOMIB [Suspect]
     Active Substance: CARFILZOMIB
     Dosage: 40 UNK
     Route: 042
  3. LENALIDOMIDE [Suspect]
     Active Substance: LENALIDOMIDE
     Indication: Plasma cell myeloma
     Dosage: 105 MILLIGRAM
     Route: 065
     Dates: start: 20220117
  4. DEXAMETHASONE [Concomitant]
     Active Substance: DEXAMETHASONE
     Indication: Plasma cell myeloma
     Dosage: 5-40 MILLIGRAM
     Dates: start: 20220118
  5. ERYTHROPOIETIN [Concomitant]
     Active Substance: ERYTHROPOIETIN
     Dosage: 6000-10000 INTERNATIONAL UNIT
     Dates: start: 20220105
  6. ASPIRIN [Concomitant]
     Active Substance: ASPIRIN
     Dosage: 100 MILLIGRAM
     Dates: start: 20210812
  7. BIFLOR [Concomitant]
     Dosage: 282.5 MILLIGRAM
     Dates: start: 20210318
  8. RENALMIN [Concomitant]
     Dosage: UNK
     Dates: start: 20210318
  9. BOLGRE [Concomitant]
     Dosage: 40 MILLIGRAM
     Dates: start: 20210316
  10. CALCIUM POLYSTYRENE SULFONATE [Concomitant]
     Active Substance: CALCIUM POLYSTYRENE SULFONATE
     Dosage: 5-25 GRAM
     Dates: start: 20210413, end: 20220215
  11. MOSAPRIDE CITRATE [Concomitant]
     Active Substance: MOSAPRIDE CITRATE
     Dosage: 5 MILLIGRAM
     Dates: start: 20210318
  12. VALTREX [Concomitant]
     Active Substance: VALACYCLOVIR HYDROCHLORIDE
     Dosage: 500 MILLIGRAM
     Dates: start: 20211221
  13. LEVOCETIRIZINE [Concomitant]
     Active Substance: LEVOCETIRIZINE
     Dosage: 5 MILLIGRAM
     Dates: start: 20211227

REACTIONS (1)
  - Chest discomfort [Recovered/Resolved]

NARRATIVE: CASE EVENT DATE: 20220214
